FAERS Safety Report 7967703 (Version 4)
Quarter: 2013Q2

REPORT INFORMATION
  Report Type: Spontaneous
  Country: CA (occurrence: CA)
  Receive Date: 20110531
  Receipt Date: 20130405
  Transmission Date: 20140414
  Serious: Yes (Other)
  Sender: FDA-Public Use
  Company Number: PHHY2011CA43647

PATIENT
  Age: 81 Year
  Sex: Female

DRUGS (4)
  1. ACLASTA [Suspect]
     Indication: OSTEOPOROSIS
     Dosage: UNK
     Route: 042
     Dates: start: 20090722
  2. ACLASTA [Suspect]
     Dosage: UNK
     Route: 042
     Dates: start: 20100614
  3. ACLASTA [Suspect]
     Dosage: UNK
     Route: 042
     Dates: start: 20110620
  4. ACLASTA [Suspect]
     Dosage: UNK
     Route: 042
     Dates: start: 20120625

REACTIONS (3)
  - General physical health deterioration [Unknown]
  - Renal failure [Unknown]
  - Inappropriate schedule of drug administration [Unknown]
